FAERS Safety Report 7914684-4 (Version None)
Quarter: 2011Q4

REPORT INFORMATION
  Report Type: 
  Country: None (occurrence: None)
  Receive Date: 20111115
  Receipt Date: 20111109
  Transmission Date: 20120403
  Serious: Yes (Death)
  Sender: FDA-Public Use
  Company Number: PHHY2011ES098655

PATIENT
  Age: 29 Year
  Sex: Female

DRUGS (3)
  1. TERBINAFINE HCL [Suspect]
     Indication: INFECTION
  2. AMPHOTERICIN B [Suspect]
  3. VORICONAZOLE [Suspect]

REACTIONS (1)
  - SCEDOSPORIUM INFECTION [None]
